FAERS Safety Report 6369990-4 (Version None)
Quarter: 2009Q3

REPORT INFORMATION
  Report Type: 
  Country: None (occurrence: None)
  Receive Date: 20090923
  Receipt Date: 20070510
  Transmission Date: 20100115
  Serious: No
  Sender: FDA-Public Use
  Company Number: US-ASTRAZENECA-2006UW03259

PATIENT
  Sex: Female
  Weight: 95.3 kg

DRUGS (5)
  1. SEROQUEL [Suspect]
     Indication: PSYCHOTIC DISORDER
     Route: 048
     Dates: start: 20020220, end: 20020306
  2. RISPERDAL [Suspect]
     Dates: start: 19990422, end: 19990611
  3. ZYPREXA [Suspect]
     Dates: start: 20020717, end: 20050512
  4. HALDOL [Concomitant]
     Dates: start: 20000101
  5. THORAZINE [Concomitant]
     Dosage: 50MG, 100MG
     Dates: start: 20000416

REACTIONS (5)
  - DIABETES MELLITUS [None]
  - HYPERTENSION [None]
  - THYROID DISORDER [None]
  - TREMOR [None]
  - WEIGHT INCREASED [None]
